FAERS Safety Report 17548401 (Version 1)
Quarter: 2020Q1

REPORT INFORMATION
  Report Type: Spontaneous
  Country: US (occurrence: US)
  Receive Date: 20200317
  Receipt Date: 20200317
  Transmission Date: 20200409
  Serious: No
  Sender: FDA-Public Use
  Company Number: US-TEVA-2020-US-1198408

PATIENT
  Sex: Male

DRUGS (7)
  1. BUSPIRONE HYDROCHLORIDE. [Concomitant]
     Active Substance: BUSPIRONE HYDROCHLORIDE
  2. PREGABALIN. [Concomitant]
     Active Substance: PREGABALIN
  3. EMLA [Concomitant]
     Active Substance: LIDOCAINE\PRILOCAINE
  4. MIRALAX [Concomitant]
     Active Substance: POLYETHYLENE GLYCOL 3350
  5. ROPINIROLE HYDROCHLORIDE. [Concomitant]
     Active Substance: ROPINIROLE HYDROCHLORIDE
  6. SYNRIBO [Suspect]
     Active Substance: OMACETAXINE MEPESUCCINATE
     Indication: MYELODYSPLASTIC SYNDROME
     Dosage: 3 DAYS PER 28 DAY CYCLE
     Dates: start: 20191120
  7. FEXOFENADINE HYDROCHLORIDE. [Concomitant]
     Active Substance: FEXOFENADINE HYDROCHLORIDE

REACTIONS (2)
  - Malaise [Unknown]
  - Headache [Unknown]
